FAERS Safety Report 24370693 (Version 1)
Quarter: 2024Q3

REPORT INFORMATION
  Report Type: Spontaneous
  Country: CN (occurrence: CN)
  Receive Date: 20240927
  Receipt Date: 20240927
  Transmission Date: 20241017
  Serious: Yes (Hospitalization)
  Sender: ACCORD
  Company Number: None

PATIENT
  Age: 30 Year
  Sex: Female
  Weight: 56 kg

DRUGS (3)
  1. TRASTUZUMAB [Suspect]
     Active Substance: TRASTUZUMAB
     Indication: Product used for unknown indication
     Dosage: 350 MILLIGRAM, QD, STRENGTH  150 MILLIGRAM
     Route: 042
     Dates: start: 20240822, end: 20240822
  2. PERJETA [Suspect]
     Active Substance: PERTUZUMAB
     Indication: Product used for unknown indication
     Dosage: 420 MILLIGRAM, QD
     Route: 042
     Dates: start: 20240822, end: 20240822
  3. GRANULOCYTE COLONY STIMULATING FACT [Concomitant]
     Indication: White blood cell count decreased
     Dosage: UNK
     Dates: start: 20240821, end: 20240824

REACTIONS (1)
  - Myelosuppression [Unknown]

NARRATIVE: CASE EVENT DATE: 20240825
